FAERS Safety Report 25337819 (Version 1)
Quarter: 2025Q2

REPORT INFORMATION
  Report Type: Other
  Country: US (occurrence: US)
  Receive Date: 20250520
  Receipt Date: 20250520
  Transmission Date: 20250716
  Serious: Yes (Life-Threatening, Hospitalization, Other)
  Sender: GUARDIAN DRUG COMPANY
  Company Number: US-Guardian Drug Company-2177081

PATIENT
  Age: 18 Year
  Sex: Female

DRUGS (2)
  1. CHILDRENS IBUPROFEN [Suspect]
     Active Substance: IBUPROFEN
     Indication: Product used for unknown indication
  2. IRON [Suspect]
     Active Substance: IRON

REACTIONS (6)
  - Acute hepatic failure [Recovered/Resolved]
  - Intentional overdose [Unknown]
  - Gastrointestinal haemorrhage [Recovered/Resolved]
  - Gastrointestinal disorder [Recovered/Resolved]
  - Hyperammonaemia [Recovered/Resolved]
  - Generalised tonic-clonic seizure [Recovered/Resolved]
